FAERS Safety Report 17605726 (Version 6)
Quarter: 2020Q3

REPORT INFORMATION
  Report Type: Report from Study
  Country: US (occurrence: US)
  Receive Date: 20200331
  Receipt Date: 20200822
  Transmission Date: 20201102
  Serious: Yes (Hospitalization)
  Sender: FDA-Public Use
  Company Number: US-ACTELION-A-NJ2017-163589

PATIENT
  Age: 50 Year
  Sex: Female
  Weight: 72.56 kg

DRUGS (4)
  1. VELETRI [Suspect]
     Active Substance: EPOPROSTENOL
     Dosage: 37 NG/KG, PER MIN
     Route: 042
  2. VELETRI [Suspect]
     Active Substance: EPOPROSTENOL
     Indication: PULMONARY ARTERIAL HYPERTENSION
     Dosage: 42.78 NG/KG, PER MIN
     Route: 042
  3. VELETRI [Suspect]
     Active Substance: EPOPROSTENOL
     Dosage: 37 NG/KG, PER MIN
     Route: 042
  4. REMODULIN [Suspect]
     Active Substance: TREPROSTINIL
     Indication: PRODUCT USED FOR UNKNOWN INDICATION
     Dosage: UNK
     Route: 042

REACTIONS (24)
  - Oropharyngeal pain [Unknown]
  - Pneumonia [Unknown]
  - Catheter site infection [Unknown]
  - Hypothyroidism [Unknown]
  - Catheterisation cardiac [Unknown]
  - Rash [Recovered/Resolved]
  - Device breakage [Unknown]
  - Device leakage [Unknown]
  - Rhinorrhoea [Unknown]
  - Dyspnoea exertional [Unknown]
  - Pallor [Unknown]
  - Cough [Unknown]
  - Palpitations [Recovering/Resolving]
  - Catheter site erythema [Unknown]
  - Cold sweat [Recovering/Resolving]
  - Dyspnoea [Recovering/Resolving]
  - Hypotension [Unknown]
  - Insomnia [Unknown]
  - Wrong technique in product usage process [Recovering/Resolving]
  - Hyperhidrosis [Unknown]
  - Catheter management [Recovering/Resolving]
  - Accidental exposure to product [Unknown]
  - Headache [Unknown]
  - Catheter site pain [Unknown]

NARRATIVE: CASE EVENT DATE: 20180309
